FAERS Safety Report 24815894 (Version 1)
Quarter: 2025Q1

REPORT INFORMATION
  Report Type: Spontaneous
  Country: CN (occurrence: CN)
  Receive Date: 20250107
  Receipt Date: 20250107
  Transmission Date: 20250409
  Serious: Yes (Hospitalization, Other)
  Sender: PFIZER
  Company Number: CN-PFIZER INC-PV202500000312

PATIENT
  Age: 12 Year
  Sex: Male
  Weight: 60 kg

DRUGS (9)
  1. CYTARABINE [Suspect]
     Active Substance: CYTARABINE
     Indication: T-cell lymphoma
     Dosage: 0.120 G, 1X/DAY
     Route: 041
     Dates: start: 20241106, end: 20241109
  2. CYTARABINE [Suspect]
     Active Substance: CYTARABINE
     Indication: Leukaemia
     Dosage: 0.120 G, 1X/DAY
     Route: 041
     Dates: start: 20241113, end: 20241116
  3. MERCAPTOPURINE [Suspect]
     Active Substance: MERCAPTOPURINE
     Indication: T-cell lymphoma
     Dosage: 100.000 MG, 1X/DAY
     Route: 048
     Dates: start: 20241104, end: 20241117
  4. MERCAPTOPURINE [Suspect]
     Active Substance: MERCAPTOPURINE
     Indication: Leukaemia
  5. CYCLOPHOSPHAMIDE [Suspect]
     Active Substance: CYCLOPHOSPHAMIDE
     Indication: T-cell lymphoma
     Dosage: 1.600 G, 1X/DAY
     Route: 041
     Dates: start: 20241104, end: 20241104
  6. CYCLOPHOSPHAMIDE [Suspect]
     Active Substance: CYCLOPHOSPHAMIDE
     Indication: Leukaemia
  7. SODIUM CHLORIDE [Concomitant]
     Active Substance: SODIUM CHLORIDE
     Indication: Vehicle solution use
     Dosage: 135.0000 ML, 1X/DAY
     Route: 042
     Dates: start: 20241104, end: 20241104
  8. SODIUM CHLORIDE [Concomitant]
     Active Substance: SODIUM CHLORIDE
     Dosage: 250.000 ML, 1X/DAY
     Route: 041
     Dates: start: 20241106, end: 20241109
  9. SODIUM CHLORIDE [Concomitant]
     Active Substance: SODIUM CHLORIDE
     Dosage: 250.000 ML, 1X/DAY
     Route: 041
     Dates: start: 20241113, end: 20241116

REACTIONS (2)
  - Myelosuppression [Recovering/Resolving]
  - Neutropenic infection [Recovering/Resolving]

NARRATIVE: CASE EVENT DATE: 20241117
